FAERS Safety Report 23768174 (Version 1)
Quarter: 2024Q2

REPORT INFORMATION
  Report Type: Spontaneous
  Country: FI (occurrence: FI)
  Receive Date: 20240422
  Receipt Date: 20240422
  Transmission Date: 20240715
  Serious: Yes (Hospitalization)
  Sender: FDA-Public Use
  Company Number: FI-ROCHE-2264369

PATIENT
  Age: 17 Year
  Sex: Male

DRUGS (8)
  1. QUETIAPINE [Suspect]
     Active Substance: QUETIAPINE
     Indication: Behaviour disorder
     Dosage: 150-200 MG DAILY
  2. CLONAZEPAM [Suspect]
     Active Substance: CLONAZEPAM
     Indication: Movement disorder
     Dosage: DAILY DOSE: 1 MILLIGRAM
  3. HALOPERIDOL [Suspect]
     Active Substance: HALOPERIDOL
     Indication: Movement disorder
     Dosage: DAILY DOSE: 1.5 MILLIGRAM
  4. DIAZEPAM [Suspect]
     Active Substance: DIAZEPAM
     Indication: Movement disorder
     Dosage: DAILY DOSE: 2 MILLIGRAM
  5. DIAZEPAM [Suspect]
     Active Substance: DIAZEPAM
     Indication: Anxiety
     Dosage: DAILY DOSE: 2 MILLIGRAM
  6. PHENOTHIAZINE [Suspect]
     Active Substance: PHENOTHIAZINE
     Indication: Aggression
  7. VALPROATE [Suspect]
     Active Substance: VALPROIC ACID
     Indication: Epilepsy
     Dosage: 600-1000 MG DAILY
  8. MELATONIN [Suspect]
     Active Substance: MELATONIN
     Indication: Sleep disorder
     Dosage: DAILY DOSE: 3 MILLIGRAM

REACTIONS (4)
  - Tardive dyskinesia [Recovered/Resolved]
  - Intentional self-injury [Recovered/Resolved]
  - Sepsis [Unknown]
  - Therapy non-responder [Unknown]
